FAERS Safety Report 13372844 (Version 1)
Quarter: 2017Q1

REPORT INFORMATION
  Report Type: Spontaneous
  Country: US (occurrence: US)
  Receive Date: 20170325
  Receipt Date: 20170325
  Transmission Date: 20170429
  Serious: Yes (Other)
  Sender: FDA-Public Use
  Company Number: None

PATIENT
  Age: 52 Year
  Sex: Female
  Weight: 63 kg

DRUGS (1)
  1. CAMILA [Suspect]
     Active Substance: NORETHINDRONE
     Indication: OVARIAN CYST
     Route: 048
     Dates: start: 19971201, end: 20170101

REACTIONS (1)
  - Breast cancer [None]

NARRATIVE: CASE EVENT DATE: 20161205
